FAERS Safety Report 5919986-9 (Version None)
Quarter: 2008Q4

REPORT INFORMATION
  Report Type: 
  Country: None (occurrence: None)
  Receive Date: 20081014
  Receipt Date: 20080930
  Transmission Date: 20090506
  Serious: Yes (Hospitalization)
  Sender: FDA-Public Use
  Company Number: 2008S1017894

PATIENT
  Age: 79 Year
  Sex: Female

DRUGS (6)
  1. BYSTOLIC [Suspect]
     Indication: ARRHYTHMIA
     Dosage: 5 MG, DAILY, ORAL
     Route: 048
     Dates: start: 20080508, end: 20080626
  2. COUMADIN [Concomitant]
  3. ARMOUR THYROID [Concomitant]
  4. AMARYL [Concomitant]
  5. GLYSET [Concomitant]
  6. MULTI-VITAMINS [Concomitant]

REACTIONS (3)
  - CELLULITIS [None]
  - MUSCLE CONTRACTIONS INVOLUNTARY [None]
  - OEDEMA PERIPHERAL [None]
